FAERS Safety Report 7108331-1 (Version None)
Quarter: 2010Q4

REPORT INFORMATION
  Report Type: 
  Country: None (occurrence: None)
  Receive Date: 20101117
  Receipt Date: 20101110
  Transmission Date: 20110411
  Serious: Yes (Other)
  Sender: FDA-Public Use
  Company Number: PHHO2010NZ12597

PATIENT
  Sex: Male
  Weight: 62 kg

DRUGS (5)
  1. TASIGNA [Suspect]
     Indication: CHRONIC MYELOID LEUKAEMIA
     Dosage: 800 MG / DAY
     Route: 048
     Dates: start: 20100331, end: 20100705
  2. IMATINIB [Suspect]
     Indication: CHRONIC MYELOID LEUKAEMIA
     Dosage: 600 MG / DAY
     Route: 048
     Dates: start: 20091208, end: 20100102
  3. IMATINIB [Suspect]
     Dosage: OFF STUDY MEDICATION
     Dates: start: 20100103, end: 20100110
  4. IMATINIB [Suspect]
     Dosage: 600 MG / DAY
     Route: 048
     Dates: start: 20100111, end: 20100209
  5. IMATINIB [Suspect]
     Dosage: 800 MG /  DAY
     Route: 048
     Dates: start: 20100210, end: 20100330

REACTIONS (3)
  - APLASTIC ANAEMIA [None]
  - BONE MARROW FAILURE [None]
  - THROMBOCYTOPENIA [None]
